FAERS Safety Report 6971045-2 (Version None)
Quarter: 2010Q3

REPORT INFORMATION
  Report Type: 
  Country: None (occurrence: None)
  Receive Date: 20100908
  Receipt Date: 20100828
  Transmission Date: 20110219
  Serious: Yes (Other)
  Sender: FDA-Public Use
  Company Number: US-PFIZER INC-2010109115

PATIENT
  Sex: Male
  Weight: 71 kg

DRUGS (3)
  1. CHANTIX [Suspect]
     Indication: SMOKING CESSATION THERAPY
     Dosage: 0.5 MG, 1X/DAY
     Route: 048
     Dates: start: 20100823, end: 20100801
  2. CHANTIX [Suspect]
     Dosage: 0.5 MG, 2X/DAY
     Route: 048
     Dates: start: 20100801
  3. CELEXA [Concomitant]
     Indication: DEPRESSION
     Dosage: UNK

REACTIONS (3)
  - CONFUSIONAL STATE [None]
  - DIZZINESS [None]
  - PRESYNCOPE [None]
